FAERS Safety Report 13546610 (Version 1)
Quarter: 2017Q2

REPORT INFORMATION
  Report Type: Spontaneous
  Country: US (occurrence: US)
  Receive Date: 20170515
  Receipt Date: 20170515
  Transmission Date: 20170830
  Serious: No
  Sender: FDA-Public Use
  Company Number: US-VIFOR (INTERNATIONAL) INC.-VIT-2017-00704

PATIENT
  Sex: Male

DRUGS (15)
  1. CALCITRIOL. [Concomitant]
     Active Substance: CALCITRIOL
  2. ATORVASTATIN CALCIUM. [Concomitant]
     Active Substance: ATORVASTATIN CALCIUM
  3. COLECALCIFEROL [Concomitant]
     Active Substance: CHOLECALCIFEROL
  4. ACETYLSALICYLIC ACID [Concomitant]
     Active Substance: ASPIRIN
  5. OMEGA 3 500 [Concomitant]
  6. RANITIDINE HYDROCHLORIDE. [Concomitant]
     Active Substance: RANITIDINE HYDROCHLORIDE
  7. SODIUM BICARBONATE. [Concomitant]
     Active Substance: SODIUM BICARBONATE
  8. VELTASSA [Suspect]
     Active Substance: PATIROMER
     Indication: HYPERKALAEMIA
     Route: 048
     Dates: start: 20160218
  9. MAGNESIUM CHLORIDE ANHYDROUS [Concomitant]
     Active Substance: MAGNESIUM CHLORIDE ANHYDROUS
  10. SUCRALFATE. [Concomitant]
     Active Substance: SUCRALFATE
  11. URSODIOL. [Concomitant]
     Active Substance: URSODIOL
  12. ASCORBIC ACID. [Concomitant]
     Active Substance: ASCORBIC ACID
  13. ATENOLOL. [Concomitant]
     Active Substance: ATENOLOL
  14. GLEEVEC [Concomitant]
     Active Substance: IMATINIB MESYLATE
  15. ISOSORBIDE MONONITRATE. [Concomitant]
     Active Substance: ISOSORBIDE MONONITRATE

REACTIONS (1)
  - Dysphagia [Unknown]
